FAERS Safety Report 9640261 (Version 2)
Quarter: 2013Q4

REPORT INFORMATION
  Report Type: Spontaneous
  Country: US (occurrence: US)
  Receive Date: 20131023
  Receipt Date: 20131107
  Transmission Date: 20140711
  Serious: No
  Sender: FDA-Public Use
  Company Number: US-PFIZER INC-2013301718

PATIENT
  Age: 73 Year
  Sex: Female

DRUGS (12)
  1. XELJANZ [Suspect]
     Dosage: 5 MG, 2X/DAY
     Route: 048
     Dates: start: 20130712
  2. ATENOLOL [Concomitant]
     Dosage: UNK
  3. LASIX [Concomitant]
     Dosage: UNK
  4. PLAVIX [Concomitant]
     Dosage: UNK
  5. POTASSIUM [Concomitant]
     Dosage: UNK
  6. ASPIRIN [Concomitant]
     Dosage: UNK
  7. RANEXA [Concomitant]
     Dosage: UNK
  8. ZOCOR [Concomitant]
     Dosage: UNK
  9. CYMBALTA [Concomitant]
     Dosage: UNK
  10. MOBIC [Concomitant]
     Dosage: UNK
  11. SYNTHROID [Concomitant]
     Dosage: UNK
  12. KLONOPIN [Concomitant]
     Dosage: UNK

REACTIONS (1)
  - Cystitis [Recovered/Resolved]
